FAERS Safety Report 8386923-X (Version None)
Quarter: 2012Q2

REPORT INFORMATION
  Report Type: 
  Country: None (occurrence: None)
  Receive Date: 20120522
  Receipt Date: 20120522
  Transmission Date: 20120825
  Serious: Yes (Other)
  Sender: FDA-Public Use
  Company Number: None

PATIENT
  Age: 48 Year
  Sex: Male
  Weight: 79.3795 kg

DRUGS (1)
  1. LEVETIRACETAM [Suspect]
     Indication: CONVULSION
     Dosage: 1 TABLET 2 PO
     Route: 048
     Dates: start: 20110711, end: 20120519

REACTIONS (5)
  - MUSCULOSKELETAL STIFFNESS [None]
  - MUSCLE SPASMS [None]
  - CONVULSION [None]
  - HEADACHE [None]
  - PRODUCT SUBSTITUTION ISSUE [None]
